FAERS Safety Report 6722817-0 (Version None)
Quarter: 2010Q2

REPORT INFORMATION
  Report Type: 
  Country: None (occurrence: None)
  Receive Date: 20100512
  Receipt Date: 20100512
  Transmission Date: 20101027
  Serious: Yes (Hospitalization)
  Sender: FDA-Public Use
  Company Number: None

PATIENT
  Sex: Female
  Weight: 58.4 kg

DRUGS (1)
  1. ERBITUX [Suspect]
     Dosage: 400 MG

REACTIONS (2)
  - ABDOMINAL PAIN LOWER [None]
  - CONSTIPATION [None]
